FAERS Safety Report 8763941 (Version 2)
Quarter: 2013Q4

REPORT INFORMATION
  Report Type: Report from Study
  Country: FR (occurrence: FR)
  Receive Date: 20120831
  Receipt Date: 20131105
  Transmission Date: 20140711
  Serious: Yes (Hospitalization)
  Sender: FDA-Public Use
  Company Number: FR-009507513-1208FRA009809

PATIENT
  Age: 60 Year
  Sex: Female
  Weight: 54 kg

DRUGS (5)
  1. BOCEPREVIR [Suspect]
     Indication: HEPATITIS C
     Dosage: 800 MG, TID
     Dates: start: 20120307
  2. VIRAFERONPEG [Suspect]
     Indication: HEPATITIS C
     Dosage: 80 MICROGRAM, QW
     Dates: start: 20120208
  3. REBETOL [Suspect]
     Indication: HEPATITIS C
     Dosage: 400 MG, BID
     Dates: start: 20120208
  4. TRUVADA [Concomitant]
     Indication: HIV INFECTION
     Dosage: 200 MG, QD
     Dates: start: 20100622
  5. ISENTRESS [Concomitant]
     Indication: HIV INFECTION
     Dosage: 400 MG, QD
     Dates: start: 20110324

REACTIONS (1)
  - General physical health deterioration [Unknown]
